FAERS Safety Report 18325042 (Version 10)
Quarter: 2025Q2

REPORT INFORMATION
  Report Type: Spontaneous
  Country: US (occurrence: US)
  Receive Date: 20200929
  Receipt Date: 20250618
  Transmission Date: 20250717
  Serious: Yes (Other)
  Sender: PFIZER
  Company Number: US-PFIZER INC-2020372944

PATIENT
  Age: 72 Year
  Sex: Female

DRUGS (1)
  1. LORBRENA [Suspect]
     Active Substance: LORLATINIB
     Indication: Lung neoplasm malignant
     Dosage: 100 MG, DAILY (TAKE 1 TABLET)
     Route: 048

REACTIONS (3)
  - Metastases to bone [Unknown]
  - Metastases to central nervous system [Unknown]
  - Metastases to spinal cord [Unknown]
